FAERS Safety Report 9264138 (Version 1)
Quarter: 2013Q2

REPORT INFORMATION
  Report Type: Spontaneous
  Country: GB (occurrence: GB)
  Receive Date: 20130430
  Receipt Date: 20130430
  Transmission Date: 20140414
  Serious: Yes (Disabling)
  Sender: FDA-Public Use
  Company Number: GB-TEVA-400594ISR

PATIENT
  Sex: Female

DRUGS (1)
  1. TERBINAFINE [Suspect]
     Indication: NAIL INFECTION
     Dosage: 250MG TABLETS
     Route: 065
     Dates: start: 20130124, end: 20130320

REACTIONS (2)
  - Joint stiffness [Recovered/Resolved]
  - Musculoskeletal stiffness [Recovered/Resolved]
